FAERS Safety Report 5174090-5 (Version None)
Quarter: 2006Q4

REPORT INFORMATION
  Report Type: 
  Country: None (occurrence: None)
  Receive Date: 20061214
  Receipt Date: 20061130
  Transmission Date: 20070319
  Serious: Yes (Other)
  Sender: FDA-Public Use
  Company Number: HQWYE000101DEC06

PATIENT
  Age: 55 Year
  Sex: Female

DRUGS (4)
  1. ETANERCEPT [Suspect]
     Indication: RHEUMATOID ARTHRITIS
     Route: 058
  2. METHOTREXATE [Concomitant]
     Dosage: UNKNOWN
  3. PREDNISOLONE [Concomitant]
     Dosage: UNKNOWN
  4. NSAIDS [Concomitant]

REACTIONS (13)
  - ACID FAST BACILLI INFECTION [None]
  - ADENOVIRAL UPPER RESPIRATORY INFECTION [None]
  - ANAEMIA [None]
  - CACHEXIA [None]
  - GINGIVAL BLEEDING [None]
  - LUNG INFILTRATION [None]
  - MOUTH ULCERATION [None]
  - PLEURAL EFFUSION [None]
  - PNEUMONITIS [None]
  - PULMONARY HAEMORRHAGE [None]
  - SYSTEMIC LUPUS ERYTHEMATOSUS [None]
  - THROMBOCYTOPENIA [None]
  - WEIGHT DECREASED [None]
